FAERS Safety Report 6396752-4 (Version None)
Quarter: 2009Q4

REPORT INFORMATION
  Report Type: 
  Country: None (occurrence: None)
  Receive Date: 20091012
  Receipt Date: 20090526
  Transmission Date: 20100525
  Serious: No
  Sender: FDA-Public Use
  Company Number: US-ASTRAZENECA-2009UW13390

PATIENT
  Age: 18966 Day
  Sex: Female
  Weight: 102.1 kg

DRUGS (1)
  1. SYMBICORT [Suspect]
     Indication: ASTHMA
     Dosage: 160 UG 2 PUFFS TWO TIMES A DAY
     Route: 055
     Dates: start: 20090201

REACTIONS (2)
  - BLISTER [None]
  - SUNBURN [None]
